FAERS Safety Report 7274758-0 (Version None)
Quarter: 2011Q1

REPORT INFORMATION
  Report Type: 
  Country: None (occurrence: None)
  Receive Date: 20110202
  Receipt Date: 20110202
  Transmission Date: 20110831
  Serious: Yes (Other)
  Sender: FDA-Public Use
  Company Number: None

PATIENT
  Sex: Male
  Weight: 81.6475 kg

DRUGS (1)
  1. TOPIRAMATE [Suspect]
     Dosage: 50 MG 1X

REACTIONS (3)
  - ERECTILE DYSFUNCTION [None]
  - ARRHYTHMIA [None]
  - SYNCOPE [None]
